FAERS Safety Report 4485915-0 (Version None)
Quarter: 2004Q4

REPORT INFORMATION
  Report Type: 
  Country: None (occurrence: None)
  Receive Date: 20041020
  Receipt Date: 20041007
  Transmission Date: 20050328
  Serious: Yes (Hospitalization)
  Sender: FDA-Public Use
  Company Number: 2003-02350

PATIENT
  Age: 72 Year
  Sex: Male

DRUGS (6)
  1. IMMUCYST (BCG-IT (CONNAUGHT)) AVENTIS PASTEUR LTD C1342AB [Suspect]
     Indication: BLADDER CANCER
     Dosage: (81.0 MG), B. IN., BLADDER
     Dates: start: 20031013
  2. OFLOCET [Concomitant]
  3. PLACEBO OFLOCET [Concomitant]
  4. LANSOPRAZOLE [Concomitant]
  5. DULCIPHAK [Concomitant]
  6. EUPHYTOSE [Concomitant]

REACTIONS (16)
  - ALANINE AMINOTRANSFERASE INCREASED [None]
  - ARTHRALGIA [None]
  - ASPARTATE AMINOTRANSFERASE INCREASED [None]
  - ASTHENIA [None]
  - CHILLS [None]
  - CHOLESTASIS [None]
  - COUGH [None]
  - DYSURIA [None]
  - HAEMATURIA [None]
  - HEADACHE [None]
  - HEPATIC FUNCTION ABNORMAL [None]
  - INFLUENZA LIKE ILLNESS [None]
  - LUNG INFILTRATION [None]
  - PERINEAL PAIN [None]
  - POLLAKIURIA [None]
  - PYREXIA [None]
